FAERS Safety Report 9422900 (Version 1)
Quarter: 2013Q3

REPORT INFORMATION
  Report Type: Spontaneous
  Country: US (occurrence: US)
  Receive Date: 20130726
  Receipt Date: 20130726
  Transmission Date: 20140515
  Serious: No
  Sender: FDA-Public Use
  Company Number: US-009507513-1307USA010437

PATIENT
  Age: 52 Year
  Sex: Male

DRUGS (21)
  1. VICTRELIS [Suspect]
     Indication: HEPATITIS C
     Dosage: 200 MG CAPSULES, 4 CAPSULES/THREE TIMES A DAY
     Route: 048
     Dates: start: 20130620, end: 201306
  2. REBETOL [Suspect]
     Dosage: UNK
     Route: 048
     Dates: end: 201306
  3. PEGASYS [Suspect]
     Dosage: UNK
     Dates: end: 201306
  4. CITALOPRAM [Concomitant]
  5. RISPERIDONE [Concomitant]
  6. ADVAIR [Concomitant]
  7. ALBUTEROL [Concomitant]
  8. GABAPENTIN [Concomitant]
  9. COZAAR [Concomitant]
     Route: 048
  10. ZYRTEC [Concomitant]
  11. LANTUS [Concomitant]
  12. POTASSIUM (UNSPECIFIED) [Concomitant]
  13. CYCLOBENZAPRINE HYDROCHLORIDE [Concomitant]
  14. PRILOSEC [Concomitant]
     Route: 048
  15. IBUPROFEN [Concomitant]
  16. REMERON [Concomitant]
     Route: 048
  17. CHLORDIAZEPOXIDE [Concomitant]
  18. VALTREX [Concomitant]
  19. METFORMIN [Concomitant]
  20. ACETAMINOPHEN (+) OXYCODONE HYDROCHLORIDE [Concomitant]
  21. VITAMINS (UNSPECIFIED) [Concomitant]

REACTIONS (5)
  - Hepatitis C RNA fluctuation [Unknown]
  - Mood swings [Unknown]
  - Anger [Unknown]
  - Depression [Unknown]
  - Drug ineffective [Unknown]
